FAERS Safety Report 6910250-8 (Version None)
Quarter: 2010Q3

REPORT INFORMATION
  Report Type: 
  Country: None (occurrence: None)
  Receive Date: 20100708
  Receipt Date: 20090421
  Transmission Date: 20110219
  Serious: Yes (Other)
  Sender: FDA-Public Use
  Company Number: 2008099747

PATIENT
  Sex: Female
  Weight: 103.9 kg

DRUGS (3)
  1. CHANTIX [Suspect]
     Indication: SMOKING CESSATION THERAPY
     Dosage: 1 MG, 2X/DAY, ORAL
     Route: 048
     Dates: start: 20081014, end: 20081024
  2. CHOLESTEROL-AND TRIGLYCERIDE REDUCERS [Concomitant]
  3. ANTIHYPERTENSIVES [Concomitant]

REACTIONS (5)
  - ANXIETY [None]
  - PSYCHIATRIC SYMPTOM [None]
  - STRESS [None]
  - SUICIDAL IDEATION [None]
  - TOBACCO USER [None]
